FAERS Safety Report 15114423 (Version 1)
Quarter: 2018Q3

REPORT INFORMATION
  Report Type: Spontaneous
  Country: IT (occurrence: IT)
  Receive Date: 20180706
  Receipt Date: 20180706
  Transmission Date: 20181010
  Serious: Yes (Hospitalization)
  Sender: FDA-Public Use
  Company Number: PHHY2018IT036986

PATIENT
  Age: 95 Year
  Sex: Female

DRUGS (3)
  1. ALLOPURINOL. [Suspect]
     Active Substance: ALLOPURINOL
     Indication: HYPERURICAEMIA
     Dosage: 150 MG, QD
     Route: 065
     Dates: start: 20180301, end: 20180405
  2. TICLOPIDINE HYDROCHLORIDE. [Suspect]
     Active Substance: TICLOPIDINE HYDROCHLORIDE
     Indication: ARTERIAL DISORDER
     Dosage: 500 MG, QD
     Route: 065
     Dates: start: 20180313, end: 20180403
  3. TICLOPIDINE HYDROCHLORIDE. [Suspect]
     Active Substance: TICLOPIDINE HYDROCHLORIDE
     Dosage: 250 MG, QD
     Route: 048
     Dates: start: 20180403

REACTIONS (3)
  - Jaundice [Unknown]
  - Hyperbilirubinaemia [Unknown]
  - Urticaria [Unknown]

NARRATIVE: CASE EVENT DATE: 20180405
